FAERS Safety Report 8477001-X (Version None)
Quarter: 2012Q2

REPORT INFORMATION
  Report Type: 
  Country: None (occurrence: None)
  Receive Date: 20120629
  Receipt Date: 20120620
  Transmission Date: 20120825
  Serious: No
  Sender: FDA-Public Use
  Company Number: US-BIOGENIDEC-2012BI022125

PATIENT
  Sex: Female

DRUGS (1)
  1. AVONEX [Suspect]
     Indication: MULTIPLE SCLEROSIS
     Route: 030

REACTIONS (6)
  - FEAR [None]
  - DEPRESSED MOOD [None]
  - MULTIPLE SCLEROSIS RELAPSE [None]
  - STRESS [None]
  - FATIGUE [None]
  - DRUG INEFFECTIVE [None]
